FAERS Safety Report 9289366 (Version 2)
Quarter: 2013Q2

REPORT INFORMATION
  Report Type: Spontaneous
  Country: US (occurrence: US)
  Receive Date: 20130514
  Receipt Date: 20130517
  Transmission Date: 20140414
  Serious: Yes (Hospitalization, Other)
  Sender: FDA-Public Use
  Company Number: US-PFIZER INC-2013146907

PATIENT
  Age: 50 Year
  Sex: Female
  Weight: 81.18 kg

DRUGS (4)
  1. LYRICA [Suspect]
     Indication: NERVE INJURY
     Dosage: 300MG TWO TIMES A DAY (MORNING AND NIGHT) AND 150MG IN MIDDLE OF DAY
  2. LYRICA [Interacting]
     Indication: FIBROMYALGIA
  3. LYRICA [Interacting]
     Indication: PAIN
  4. OXYCONTIN [Interacting]
     Indication: PAIN
     Dosage: UNK

REACTIONS (11)
  - Staphylococcal infection [Unknown]
  - Dizziness [Unknown]
  - Product quality issue [Unknown]
  - Vomiting [Unknown]
  - Drug interaction [Unknown]
  - Hypertension [Unknown]
  - Diarrhoea [Unknown]
  - Vomiting [Unknown]
  - Somnolence [Unknown]
  - Weight decreased [Unknown]
  - Chills [Unknown]
